FAERS Safety Report 24875726 (Version 4)
Quarter: 2025Q2

REPORT INFORMATION
  Report Type: Spontaneous
  Country: US (occurrence: US)
  Receive Date: 20250122
  Receipt Date: 20250610
  Transmission Date: 20250716
  Serious: Yes (Disabling)
  Sender: APELLIS PHARMACEUTICALS
  Company Number: US-APELLIS-2025-APL-0000177

PATIENT

DRUGS (2)
  1. SYFOVRE [Suspect]
     Active Substance: PEGCETACOPLAN
     Indication: Product used for unknown indication
     Route: 065
     Dates: start: 20240620, end: 20250116
  2. SYFOVRE [Suspect]
     Active Substance: PEGCETACOPLAN
     Route: 065
     Dates: start: 20240718, end: 20250116

REACTIONS (2)
  - Optic ischaemic neuropathy [Recovered/Resolved]
  - Neovascular age-related macular degeneration [Not Recovered/Not Resolved]

NARRATIVE: CASE EVENT DATE: 20241219
